FAERS Safety Report 6133218-0 (Version None)
Quarter: 2009Q1

REPORT INFORMATION
  Report Type: 
  Country: None (occurrence: None)
  Receive Date: 20090325
  Receipt Date: 20090325
  Transmission Date: 20090719
  Serious: Yes (Hospitalization, Other)
  Sender: FDA-Public Use
  Company Number: None

PATIENT
  Age: 57 Year
  Sex: Female
  Weight: 72.5755 kg

DRUGS (3)
  1. RECLAST [Suspect]
     Indication: OSTEOPOROSIS
     Dosage: 1 DOSE ANNUALLY IV DRIP
     Route: 041
     Dates: start: 20081103, end: 20081103
  2. SALENE SOLUTION [Concomitant]
  3. ULTRACET [Concomitant]

REACTIONS (4)
  - CHEST PAIN [None]
  - PAIN [None]
  - PAIN IN EXTREMITY [None]
  - TREMOR [None]
